FAERS Safety Report 8451730-6 (Version None)
Quarter: 2012Q2

REPORT INFORMATION
  Report Type: 
  Country: None (occurrence: None)
  Receive Date: 20120620
  Receipt Date: 20120314
  Transmission Date: 20120825
  Serious: No
  Sender: FDA-Public Use
  Company Number: US-VERTEX PHARMACEUTICALS INC.-AE-2012-003732

PATIENT
  Sex: Male
  Weight: 83.99 kg

DRUGS (5)
  1. INCIVEK [Suspect]
     Indication: HEPATITIS C
     Route: 048
     Dates: start: 20120314
  2. AMBIEN [Concomitant]
     Route: 048
  3. RIBAVIRIN [Concomitant]
     Indication: HEPATITIS C
     Route: 048
     Dates: start: 20120314
  4. IBUPROFEN (ADVIL) [Concomitant]
     Indication: DISCOMFORT
     Route: 048
  5. PEGASYS [Concomitant]
     Indication: HEPATITIS C
     Route: 058
     Dates: start: 20120314

REACTIONS (6)
  - PAIN [None]
  - FEELING HOT [None]
  - ANXIETY [None]
  - INFLUENZA LIKE ILLNESS [None]
  - CHILLS [None]
  - IRRITABILITY [None]
